FAERS Safety Report 12697868 (Version 2)
Quarter: 2016Q3

REPORT INFORMATION
  Report Type: Spontaneous
  Country: IT (occurrence: JP)
  Receive Date: 20160830
  Receipt Date: 20160913
  Transmission Date: 20161109
  Serious: Yes (Death)
  Sender: FDA-Public Use
  Company Number: IT-SIGMA-TAU US-2016STPI000655

PATIENT
  Sex: Female

DRUGS (1)
  1. CARNITOR [Suspect]
     Active Substance: LEVOCARNITINE
     Indication: CARNITINE DEFICIENCY
     Dosage: 3000 MG, QD
     Route: 050

REACTIONS (2)
  - Malaise [Recovered/Resolved]
  - Multiple system atrophy [Fatal]

NARRATIVE: CASE EVENT DATE: 2016
